FAERS Safety Report 7549010-6 (Version None)
Quarter: 2011Q2

REPORT INFORMATION
  Report Type: 
  Country: None (occurrence: None)
  Receive Date: 20110615
  Receipt Date: 20110602
  Transmission Date: 20111010
  Serious: Yes (Other)
  Sender: FDA-Public Use
  Company Number: CA-ROCHE-780811

PATIENT

DRUGS (11)
  1. FLUCONAZOLE [Concomitant]
     Route: 048
  2. ACYCLOVIR [Concomitant]
     Route: 048
  3. LEVOTHYROXINE SODIUM [Concomitant]
     Route: 048
  4. RANITIDINE [Concomitant]
     Route: 065
  5. CIPROFLOXACIN HCL [Concomitant]
     Route: 048
  6. CYTARABINA [Concomitant]
     Route: 042
  7. ACETAMINOPHEN [Concomitant]
  8. MIN-OVRAL 28 [Concomitant]
     Route: 065
  9. VESANOID [Suspect]
     Route: 048
  10. DAUNORUBICIN HYDROCHLORIDE [Concomitant]
     Route: 042
  11. DILTIAZEM [Concomitant]
     Route: 065

REACTIONS (9)
  - ALANINE AMINOTRANSFERASE INCREASED [None]
  - LIVER FUNCTION TEST ABNORMAL [None]
  - ASPARTATE AMINOTRANSFERASE INCREASED [None]
  - JOINT SWELLING [None]
  - BLOOD ALKALINE PHOSPHATASE INCREASED [None]
  - GAMMA-GLUTAMYLTRANSFERASE INCREASED [None]
  - MYALGIA [None]
  - ABDOMINAL PAIN [None]
  - NAUSEA [None]
